FAERS Safety Report 9288688 (Version 1)
Quarter: 2012Q4

REPORT INFORMATION
  Report Type: Spontaneous
  Country: FR (occurrence: None)
  Receive Date: 20120924
  Receipt Date: 20120924
  Transmission Date: 20130627
  Serious: Yes (Life-Threatening)
  Sender: FDA-Public Use
  Company Number: APL-2012-00141

PATIENT
  Age: 24 Year
  Sex: Female

DRUGS (2)
  1. PECFENT [Suspect]
     Indication: PRODUCT USED FOR UNKNOWN INDICATION
     Dates: start: 20120827, end: 20120827
  2. ACTISKENAN [Suspect]
     Indication: PRODUCT USED FOR UNKNOWN INDICATION
     Route: 048
     Dates: start: 20120827, end: 20120827

REACTIONS (7)
  - Bradypnoea [None]
  - Miosis [None]
  - Cyanosis [None]
  - Agitation [None]
  - Blood pressure decreased [None]
  - Heart rate increased [None]
  - Body temperature decreased [None]
